FAERS Safety Report 7652602-7 (Version None)
Quarter: 2011Q3

REPORT INFORMATION
  Report Type: 
  Country: None (occurrence: None)
  Receive Date: 20110803
  Receipt Date: 20110727
  Transmission Date: 20111222
  Serious: Yes (Other)
  Sender: FDA-Public Use
  Company Number: US-BAYER-201024742NA

PATIENT
  Age: 26 Year
  Sex: Female

DRUGS (2)
  1. BETASERON [Suspect]
     Indication: MULTIPLE SCLEROSIS
     Route: 058
     Dates: start: 19971122, end: 20090401
  2. BETASERON [Suspect]
     Route: 058
     Dates: start: 20100507, end: 20100524

REACTIONS (3)
  - PREGNANCY [None]
  - MATERNAL EXPOSURE DURING PREGNANCY [None]
  - NAUSEA [None]
